FAERS Safety Report 4736240-1 (Version None)
Quarter: 2005Q3

REPORT INFORMATION
  Report Type: 
  Country: None (occurrence: None)
  Receive Date: 20050804
  Receipt Date: 20050804
  Transmission Date: 20060218
  Serious: Yes (Hospitalization, Other)
  Sender: FDA-Public Use
  Company Number: None

PATIENT
  Sex: Male
  Weight: 108.1 kg

DRUGS (4)
  1. FLUOROURACIL [Suspect]
     Indication: GASTRIC CANCER
     Dosage: SEE IMAGE
     Dates: start: 20050607, end: 20050621
  2. CISPLATIN [Suspect]
     Dosage: SEE IMAGE
     Dates: start: 20050607, end: 20050607
  3. EPIRUBICIN [Suspect]
     Dosage: SEE IMAGE
     Dates: start: 20050607, end: 20050607
  4. RADIATION [Suspect]
     Dosage: SEE IMAGE
     Dates: start: 20050607

REACTIONS (18)
  - BLOOD CALCIUM DECREASED [None]
  - BLOOD POTASSIUM DECREASED [None]
  - CHILLS [None]
  - COUGH [None]
  - DYSPNOEA [None]
  - FATIGUE [None]
  - FEBRILE NEUTROPENIA [None]
  - HAEMATOCRIT DECREASED [None]
  - HAEMOGLOBIN DECREASED [None]
  - HEART RATE INCREASED [None]
  - INFECTION [None]
  - LOBAR PNEUMONIA [None]
  - LUNG INFILTRATION [None]
  - OXYGEN SATURATION DECREASED [None]
  - PNEUMONITIS [None]
  - RESPIRATORY RATE INCREASED [None]
  - RHONCHI [None]
  - WHITE BLOOD CELL COUNT DECREASED [None]
